FAERS Safety Report 15622924 (Version 1)
Quarter: 2018Q4

REPORT INFORMATION
  Report Type: Spontaneous
  Country: US (occurrence: US)
  Receive Date: 20181115
  Receipt Date: 20181115
  Transmission Date: 20190205
  Serious: No
  Sender: FDA-Public Use
  Company Number: US-SA-2018SA313069

PATIENT
  Sex: Female

DRUGS (1)
  1. KEVZARA [Suspect]
     Active Substance: SARILUMAB
     Route: 058

REACTIONS (1)
  - Exposure during pregnancy [Unknown]
